FAERS Safety Report 7081474-7 (Version None)
Quarter: 2010Q4

REPORT INFORMATION
  Report Type: 
  Country: None (occurrence: None)
  Receive Date: 20101103
  Receipt Date: 20101029
  Transmission Date: 20110411
  Serious: Yes (Hospitalization)
  Sender: FDA-Public Use
  Company Number: GXKR2009DE03243

PATIENT
  Age: 45 Year
  Sex: Female
  Weight: 65 kg

DRUGS (6)
  1. IBUHEXAL (NGX) [Suspect]
     Indication: PAIN
     Dosage: 400 MG, 1 IN 2 DAY
     Route: 048
     Dates: start: 20050101, end: 20081119
  2. CYMBALTA [Suspect]
     Indication: MULTIPLE SCLEROSIS
     Dosage: 30 MG, QD
     Route: 048
     Dates: start: 20081118, end: 20081118
  3. URBASON                                 /GFR/ [Suspect]
     Indication: MULTIPLE SCLEROSIS
     Dosage: 1 G, QD
     Route: 042
     Dates: start: 20081114, end: 20081118
  4. ACIC [Concomitant]
     Route: 048
  5. LYRICA [Concomitant]
  6. BETAFERON [Concomitant]

REACTIONS (3)
  - GASTRITIS EROSIVE [None]
  - NAUSEA [None]
  - OESOPHAGEAL CANDIDIASIS [None]
